FAERS Safety Report 6863117-8 (Version None)
Quarter: 2010Q2

REPORT INFORMATION
  Report Type: 
  Country: None (occurrence: None)
  Receive Date: 20100528
  Receipt Date: 20100317
  Transmission Date: 20101027
  Serious: No
  Sender: FDA-Public Use
  Company Number: 008875

PATIENT
  Sex: Female

DRUGS (2)
  1. LACOSAMIDE [Suspect]
     Indication: PARTIAL SEIZURES
     Dosage: (100 MG BID ORAL)
     Route: 048
  2. TRILEPTAL [Concomitant]

REACTIONS (1)
  - DIPLOPIA [None]
